FAERS Safety Report 6585119-1 (Version None)
Quarter: 2010Q1

REPORT INFORMATION
  Report Type: 
  Country: None (occurrence: None)
  Receive Date: 20100217
  Receipt Date: 20100209
  Transmission Date: 20100710
  Serious: Yes (Hospitalization, Other)
  Sender: FDA-Public Use
  Company Number: JP-PFIZER INC-2010017996

PATIENT
  Age: 63 Year
  Sex: Female
  Weight: 91.5 kg

DRUGS (2)
  1. AZITHROMYCIN [Suspect]
     Indication: PNEUMONIA
     Dosage: 500 MG DAILY
     Route: 042
     Dates: start: 20100205
  2. AZITHROMYCIN [Suspect]
     Dosage: 500 MG DAILY
     Route: 048

REACTIONS (1)
  - CARDIAC FAILURE CONGESTIVE [None]
